FAERS Safety Report 8198834-3 (Version None)
Quarter: 2012Q1

REPORT INFORMATION
  Report Type: 
  Country: None (occurrence: None)
  Receive Date: 20120309
  Receipt Date: 20120215
  Transmission Date: 20120608
  Serious: No
  Sender: FDA-Public Use
  Company Number: US-AMGEN-USASP2011018875

PATIENT
  Age: 88 Year
  Sex: Female
  Weight: 63 kg

DRUGS (17)
  1. VITAMIN D [Concomitant]
     Dosage: 2400 IU, QD
  2. ISOSORBIDE DINITRATE [Concomitant]
  3. PRAVASTATIN [Concomitant]
     Dosage: 40 MG, QD
     Route: 048
  4. POTASSIUM [Concomitant]
  5. BENICAR [Concomitant]
  6. VITAMIN B-12 [Concomitant]
  7. PLAVIX [Concomitant]
     Dosage: 75 MG, QD
     Route: 048
  8. LUTEIN [Concomitant]
  9. HYDROXYZINE [Concomitant]
     Dosage: 25 MG, PRN
     Route: 048
  10. PEPCID [Concomitant]
  11. ASPIRIN [Concomitant]
     Dosage: 81 MG, QD
     Route: 048
  12. VITAMIN D [Concomitant]
     Dosage: 2000 MG, UNK
  13. PROLIA [Suspect]
     Indication: OSTEOPOROSIS POSTMENOPAUSAL
     Dosage: UNK
     Dates: start: 20101101, end: 20101101
  14. CALCIUM [Concomitant]
     Dosage: 800 MG, QD
  15. SYNTHROID [Concomitant]
  16. FUROSEMIDE [Concomitant]
     Dosage: 20 MG, UNK
  17. TOPROL-XL [Concomitant]

REACTIONS (20)
  - MUSCULOSKELETAL CHEST PAIN [None]
  - HEADACHE [None]
  - URTICARIA [None]
  - RASH [None]
  - SKIN DISORDER [None]
  - IMPAIRED HEALING [None]
  - BONE PAIN [None]
  - ARTHRALGIA [None]
  - SKIN BURNING SENSATION [None]
  - GENITAL HERPES [None]
  - BREAST TENDERNESS [None]
  - MUSCLE SPASMS [None]
  - EYE INFECTION [None]
  - NAUSEA [None]
  - PAIN [None]
  - INSOMNIA [None]
  - ASTHENIA [None]
  - PAIN IN EXTREMITY [None]
  - MOBILITY DECREASED [None]
  - GINGIVAL PAIN [None]
